FAERS Safety Report 17428465 (Version 1)
Quarter: 2020Q1

REPORT INFORMATION
  Report Type: Spontaneous
  Country: US (occurrence: US)
  Receive Date: 20200218
  Receipt Date: 20200218
  Transmission Date: 20200409
  Serious: Yes (Hospitalization, Other)
  Sender: FDA-Public Use
  Company Number: US-009507513-2002USA004386

PATIENT
  Age: 61 Year
  Sex: Male
  Weight: 127.9 kg

DRUGS (26)
  1. LYRICA [Concomitant]
     Active Substance: PREGABALIN
     Dosage: UNK
     Dates: start: 20150422
  2. DULOXETINE HYDROCHLORIDE. [Concomitant]
     Active Substance: DULOXETINE HYDROCHLORIDE
     Dosage: UNK
     Dates: start: 2019
  3. PRINIVIL [Suspect]
     Active Substance: LISINOPRIL
     Indication: HYPERTENSION
     Dosage: 20 MG, 1X/DAY
     Route: 048
     Dates: start: 2019, end: 202001
  4. PRINIVIL [Suspect]
     Active Substance: LISINOPRIL
     Dosage: UNK
     Route: 048
     Dates: start: 202001
  5. ALBUTEROL. [Concomitant]
     Active Substance: ALBUTEROL
     Dosage: UNK
     Dates: start: 20190314
  6. AMITRIPTYLINE HYDROCHLORIDE. [Concomitant]
     Active Substance: AMITRIPTYLINE HYDROCHLORIDE
     Dosage: UNK
     Dates: start: 20160807
  7. BACLOFEN. [Suspect]
     Active Substance: BACLOFEN
     Indication: BACK PAIN
     Dosage: 20 MILLIGRAM, 4X/DAY
     Route: 048
     Dates: start: 20110913, end: 202001
  8. FAMOTIDINE. [Concomitant]
     Active Substance: FAMOTIDINE
     Dosage: UNK
     Dates: start: 20190420
  9. KLOR-CON [Concomitant]
     Active Substance: POTASSIUM CHLORIDE
     Dosage: UNK
     Dates: start: 20190131
  10. BUPROPION. [Concomitant]
     Active Substance: BUPROPION
     Dosage: UNK
     Dates: start: 2019
  11. OXYCODONE [Suspect]
     Active Substance: OXYCODONE
     Dosage: REDUCED DOSE
     Route: 048
     Dates: start: 202001
  12. OXYCODONE [Suspect]
     Active Substance: OXYCODONE
     Indication: BACK PAIN
     Dosage: 15 MILLIGRAM, AS NEEDED EVERY 6 HRS
     Route: 048
     Dates: start: 201901, end: 202001
  13. SEROQUEL [Suspect]
     Active Substance: QUETIAPINE FUMARATE
     Indication: INSOMNIA
     Dosage: 50 MG 2 TABS=100 MG, ONCE AT BED TIME AS NEEDED
     Route: 048
     Dates: start: 2019, end: 202001
  14. PRILOSEC [Concomitant]
     Active Substance: OMEPRAZOLE MAGNESIUM
     Dosage: UNK
     Dates: start: 20151012
  15. BACLOFEN. [Suspect]
     Active Substance: BACLOFEN
     Dosage: REDUCED DOSE
     Route: 048
     Dates: start: 202001
  16. LIPITOR [Concomitant]
     Active Substance: ATORVASTATIN CALCIUM
     Dosage: UNK
     Dates: start: 2016
  17. BYSTOLIC [Concomitant]
     Active Substance: NEBIVOLOL HYDROCHLORIDE
     Dosage: UNK
     Dates: start: 20111024
  18. AMLODIPINE [Concomitant]
     Active Substance: AMLODIPINE BESYLATE
     Dosage: UNK
     Dates: start: 2017
  19. CYMBALTA [Concomitant]
     Active Substance: DULOXETINE HYDROCHLORIDE
     Dosage: UNK
     Dates: start: 20181231
  20. SILDENAFIL CITRATE. [Concomitant]
     Active Substance: SILDENAFIL CITRATE
     Dosage: UNK
     Dates: start: 20180611
  21. LIVALO [Concomitant]
     Active Substance: PITAVASTATIN CALCIUM
     Dosage: UNK
     Dates: start: 20150106
  22. SEROQUEL [Suspect]
     Active Substance: QUETIAPINE FUMARATE
     Dosage: REDUCED DOSE
     Route: 048
     Dates: start: 202001
  23. PRAVACHOL [Concomitant]
     Active Substance: PRAVASTATIN SODIUM
     Dosage: UNK
     Dates: start: 2016
  24. FUROSEMIDE. [Concomitant]
     Active Substance: FUROSEMIDE
     Dosage: UNK
     Dates: start: 20190131
  25. TAMSULOSIN HYDROCHLORIDE. [Concomitant]
     Active Substance: TAMSULOSIN HYDROCHLORIDE
     Dosage: UNK
     Dates: start: 2012
  26. TESTOSTERONE CYPIONATE. [Concomitant]
     Active Substance: TESTOSTERONE CYPIONATE
     Dosage: UNK
     Dates: start: 20140613

REACTIONS (1)
  - Metabolic encephalopathy [Recovered/Resolved]

NARRATIVE: CASE EVENT DATE: 20200120
